FAERS Safety Report 5622038-9 (Version None)
Quarter: 2008Q1

REPORT INFORMATION
  Report Type: 
  Country: None (occurrence: None)
  Receive Date: 20080211
  Receipt Date: 20080131
  Transmission Date: 20080703
  Serious: Yes (Hospitalization)
  Sender: FDA-Public Use
  Company Number: US-JNJFOC-20080200143

PATIENT
  Sex: Female
  Weight: 55.1 kg

DRUGS (8)
  1. INFLIXIMAB [Suspect]
     Route: 042
  2. INFLIXIMAB [Suspect]
     Indication: CROHN'S DISEASE
     Route: 042
  3. 5-ASA [Concomitant]
  4. MVT [Concomitant]
  5. CALCIUM + VITAMIN D [Concomitant]
  6. FOLIC ACID [Concomitant]
  7. PRILOSEC [Concomitant]
     Dosage: OTC
  8. CULTURELLE [Concomitant]

REACTIONS (2)
  - CROHN'S DISEASE [None]
  - INFUSION RELATED REACTION [None]
